FAERS Safety Report 7242125-1 (Version None)
Quarter: 2011Q1

REPORT INFORMATION
  Report Type: 
  Country: None (occurrence: None)
  Receive Date: 20110118
  Receipt Date: 20110110
  Transmission Date: 20110831
  Serious: Yes (Hospitalization, Other)
  Sender: FDA-Public Use
  Company Number: 2011AC000003

PATIENT
  Age: 64 Year
  Sex: Male

DRUGS (12)
  1. HYDROCHLOROTHIAZIDE [Concomitant]
  2. ENALAPRIL MALEATE [Concomitant]
  3. COREG [Concomitant]
  4. DIGOXIN [Suspect]
     Indication: CARDIOMYOPATHY
     Dosage: 0.125 MG; QD; PO
     Route: 048
     Dates: start: 20030701
  5. TRICOR [Concomitant]
  6. VASOTEC [Concomitant]
  7. IBUPROFEN [Concomitant]
  8. ROCEPHIN [Concomitant]
  9. CELEBREX [Concomitant]
  10. OMEPRAZOLE [Concomitant]
  11. ASPIRIN [Concomitant]
  12. PLAVIX [Concomitant]

REACTIONS (35)
  - BUNDLE BRANCH BLOCK LEFT [None]
  - VIITH NERVE PARALYSIS [None]
  - CHEST PAIN [None]
  - CARDIAC FLUTTER [None]
  - PALPITATIONS [None]
  - GAIT DISTURBANCE [None]
  - BACK DISORDER [None]
  - ANGINA PECTORIS [None]
  - CORONARY ARTERY DISEASE [None]
  - DYSPNOEA EXERTIONAL [None]
  - BLOOD CHOLESTEROL INCREASED [None]
  - ARTHROPATHY [None]
  - VERTIGO [None]
  - MYOCARDIAL ISCHAEMIA [None]
  - MYOCARDIAL INFARCTION [None]
  - TRANSIENT ISCHAEMIC ATTACK [None]
  - LEFT VENTRICULAR HYPERTROPHY [None]
  - ASTHENIA [None]
  - TRICUSPID VALVE INCOMPETENCE [None]
  - SINUSITIS [None]
  - DYSARTHRIA [None]
  - HYPOTENSION [None]
  - MITRAL VALVE INCOMPETENCE [None]
  - BRONCHITIS [None]
  - DROOLING [None]
  - CAROTID ARTERY OCCLUSION [None]
  - NAUSEA [None]
  - DIZZINESS [None]
  - VENTRICULAR HYPOKINESIA [None]
  - TINNITUS [None]
  - HYPOAESTHESIA [None]
  - INTERMITTENT CLAUDICATION [None]
  - PAIN [None]
  - BLOOD TRIGLYCERIDES INCREASED [None]
  - CHEST DISCOMFORT [None]
